FAERS Safety Report 7874053-2 (Version None)
Quarter: 2011Q4

REPORT INFORMATION
  Report Type: 
  Country: None (occurrence: None)
  Receive Date: 20111030
  Receipt Date: 20110513
  Transmission Date: 20120403
  Serious: No
  Sender: FDA-Public Use
  Company Number: US-AMGEN-USASP2011025016

PATIENT
  Age: 61 Year
  Sex: Female

DRUGS (1)
  1. ENBREL [Suspect]
     Indication: RHEUMATOID ARTHRITIS
     Dosage: 50 MG, Q2WK
     Dates: start: 20060524

REACTIONS (6)
  - RESPIRATORY TRACT CONGESTION [None]
  - COUGH [None]
  - OSTEOARTHRITIS [None]
  - HYPERSENSITIVITY [None]
  - PYREXIA [None]
  - THROAT IRRITATION [None]
